FAERS Safety Report 9785194 (Version 2)
Quarter: 2013Q4

REPORT INFORMATION
  Report Type: Report from Study
  Country: US (occurrence: US)
  Receive Date: 20131227
  Receipt Date: 20131227
  Transmission Date: 20140711
  Serious: Yes (Death, Other)
  Sender: FDA-Public Use
  Company Number: US-BAYER-2013-110555

PATIENT
  Age: 58 Year
  Sex: Male

DRUGS (3)
  1. STIVARGA [Suspect]
     Indication: COLORECTAL CANCER
     Dosage: 160 MG, QD
     Route: 048
     Dates: start: 201308, end: 201309
  2. STIVARGA [Suspect]
     Indication: COLORECTAL CANCER
     Dosage: 120 MG, QD
     Route: 048
     Dates: start: 201309, end: 20131024
  3. STIVARGA [Suspect]
     Indication: COLORECTAL CANCER
     Dosage: 160 MG, QD
     Route: 048
     Dates: start: 201310, end: 20131117

REACTIONS (11)
  - Local swelling [None]
  - Blister [None]
  - Fatigue [None]
  - Muscle spasms [None]
  - Flatulence [None]
  - Dyspnoea [None]
  - Cough [None]
  - Muscle spasms [None]
  - Skin lesion [None]
  - Stomatitis [None]
  - Colorectal cancer [Fatal]
